FAERS Safety Report 11776318 (Version 1)
Quarter: 2015Q4

REPORT INFORMATION
  Report Type: Report from Study
  Country: US (occurrence: US)
  Receive Date: 20151125
  Receipt Date: 20151125
  Transmission Date: 20160304
  Serious: No
  Sender: FDA-Public Use
  Company Number: PHEH2015US023488

PATIENT
  Sex: Female

DRUGS (1)
  1. COSENTYX [Suspect]
     Active Substance: SECUKINUMAB
     Indication: PSORIASIS
     Dosage: 300 MG, QMO
     Route: 058
     Dates: start: 20150801

REACTIONS (8)
  - Nasal congestion [Unknown]
  - Eye infection [Unknown]
  - Ear disorder [Unknown]
  - Wheezing [Unknown]
  - Asthma [Unknown]
  - Palpitations [Unknown]
  - Headache [Unknown]
  - Thyroid hormones increased [Unknown]
